FAERS Safety Report 9803329 (Version 2)
Quarter: 2014Q1

REPORT INFORMATION
  Report Type: Spontaneous
  Country: CL (occurrence: CL)
  Receive Date: 20140108
  Receipt Date: 20140108
  Transmission Date: 20141002
  Serious: Yes (Other)
  Sender: FDA-Public Use
  Company Number: PHHY2013CL153969

PATIENT
  Age: 89 Year
  Sex: Female

DRUGS (3)
  1. NEOSINTROM [Suspect]
     Dosage: UNK UKN, UNK
     Dates: start: 2007
  2. NEOSINTROM [Suspect]
     Dosage: UNK UKN, UNK
  3. TAREG D [Suspect]

REACTIONS (1)
  - Mitral valve prolapse [Unknown]
